FAERS Safety Report 6212671-8 (Version None)
Quarter: 2009Q2

REPORT INFORMATION
  Report Type: 
  Country: None (occurrence: None)
  Receive Date: 20090603
  Receipt Date: 20090526
  Transmission Date: 20091009
  Serious: Yes (Other)
  Sender: FDA-Public Use
  Company Number: IT-ROCHE-634956

PATIENT
  Sex: Male

DRUGS (2)
  1. PEG-INTERFERON ALFA 2A (RO 25-8310) [Suspect]
     Indication: HEPATITIS C
     Route: 065
     Dates: start: 20081003, end: 20081210
  2. RIBAVIRIN [Suspect]
     Indication: HEPATITIS C
     Dosage: ROUTE OS.
     Route: 048
     Dates: start: 20081003, end: 20081210

REACTIONS (5)
  - ANAEMIA [None]
  - ASTHENIA [None]
  - DYSPNOEA [None]
  - MUSCULOSKELETAL PAIN [None]
  - PALPITATIONS [None]
